FAERS Safety Report 22088112 (Version 1)
Quarter: 2023Q1

REPORT INFORMATION
  Report Type: Spontaneous
  Country: CN (occurrence: CN)
  Receive Date: 20230313
  Receipt Date: 20230313
  Transmission Date: 20230418
  Serious: Yes (Other)
  Sender: FDA-Public Use
  Company Number: CN-002147023-NVSC2023CN055667

PATIENT

DRUGS (4)
  1. SACUBITRIL\VALSARTAN [Suspect]
     Active Substance: SACUBITRIL\VALSARTAN
     Indication: Cardiac failure acute
     Dosage: 25-50 MG, BID
     Route: 065
  2. SPIRONOLACTONE [Concomitant]
     Active Substance: SPIRONOLACTONE
     Indication: Cardiac failure acute
     Dosage: 1 TABLET PER TIME, QD
     Route: 065
  3. FUROSEMIDE [Concomitant]
     Active Substance: FUROSEMIDE
     Indication: Cardiac failure acute
     Dosage: 1 TABLET PER TIME, QD
     Route: 065
  4. METOPROLOL TARTRATE [Concomitant]
     Active Substance: METOPROLOL TARTRATE
     Indication: Cardiac failure acute
     Dosage: 12.5G / TIME, QD
     Route: 065

REACTIONS (2)
  - Hyperkalaemia [Unknown]
  - Off label use [Unknown]
